FAERS Safety Report 6778929-9 (Version None)
Quarter: 2010Q2

REPORT INFORMATION
  Report Type: 
  Country: None (occurrence: None)
  Receive Date: 20100618
  Receipt Date: 20100607
  Transmission Date: 20101027
  Serious: Yes (Hospitalization)
  Sender: FDA-Public Use
  Company Number: US-ELI_LILLY_AND_COMPANY-US201005007325

PATIENT
  Sex: Female
  Weight: 80.272 kg

DRUGS (16)
  1. PRASUGREL HYDROCHLORIDE [Suspect]
     Indication: ACUTE CORONARY SYNDROME
     Route: 048
     Dates: start: 20100519, end: 20100520
  2. PRASUGREL HYDROCHLORIDE [Suspect]
     Dates: start: 20100603
  3. ASPIRIN [Concomitant]
     Dosage: 325 MG, DAILY (1/D)
     Dates: start: 20100511
  4. CLOPIDOGREL [Concomitant]
     Dosage: 75 MG, UNK
     Dates: start: 20100511, end: 20100602
  5. COREG [Concomitant]
     Indication: CORONARY ARTERY DISEASE
     Dates: start: 20081219
  6. LASIX [Concomitant]
     Indication: HYPERTENSION
     Dates: start: 20090424
  7. PEPCID [Concomitant]
     Indication: GASTROOESOPHAGEAL REFLUX DISEASE
     Dates: start: 20070101
  8. ZOCOR [Concomitant]
     Indication: HYPERLIPIDAEMIA
     Dates: start: 20090424
  9. KLOR-CON [Concomitant]
     Indication: PROPHYLAXIS
     Dates: start: 20090424
  10. IMDUR [Concomitant]
     Indication: HYPERTENSION
     Dates: start: 20100513, end: 20100520
  11. SYNTHROID [Concomitant]
     Indication: HYPOTHYROIDISM
     Dates: start: 20050101
  12. TYLENOL (CAPLET) [Concomitant]
     Indication: ARTHRITIS
     Dates: start: 20090806
  13. CALCIUM + VITAMIN D [Concomitant]
     Indication: ARTHRITIS
     Dates: start: 20090806
  14. BENICAR [Concomitant]
     Indication: HYPERTENSION
     Dates: start: 20090806
  15. CITRUCEL [Concomitant]
     Indication: PROPHYLAXIS
     Dates: start: 20070101
  16. MAGNESIUM [Concomitant]
     Indication: PROPHYLAXIS

REACTIONS (1)
  - SYNCOPE [None]
